FAERS Safety Report 8819987 (Version 2)
Quarter: 2013Q1

REPORT INFORMATION
  Report Type: Spontaneous
  Country: JP (occurrence: JP)
  Receive Date: 20121001
  Receipt Date: 20130306
  Transmission Date: 20140127
  Serious: Yes (Congenital Anomaly)
  Sender: FDA-Public Use
  Company Number: PHHY2012JP082371

PATIENT
  Sex: 0
  Weight: 3 kg

DRUGS (3)
  1. CARBAMAZEPINE [Suspect]
     Route: 064
  2. VALPROIC ACID [Suspect]
     Route: 064
  3. CLOBAZAM [Suspect]
     Route: 064

REACTIONS (8)
  - Heterophoria [Unknown]
  - Lip disorder [Unknown]
  - Hypertelorism of orbit [Unknown]
  - High arched palate [Unknown]
  - Atrial septal defect [Unknown]
  - Meningomyelocele [Unknown]
  - Arnold-Chiari malformation [Unknown]
  - Foetal exposure during pregnancy [Unknown]
